FAERS Safety Report 10246954 (Version 1)
Quarter: 2014Q2

REPORT INFORMATION
  Report Type: Spontaneous
  Country: FR (occurrence: FR)
  Receive Date: 20140619
  Receipt Date: 20140619
  Transmission Date: 20141212
  Serious: Yes (Hospitalization)
  Sender: FDA-Public Use
  Company Number: FR-009507513-1406FRA008879

PATIENT
  Age: 65 Year
  Sex: Female

DRUGS (3)
  1. FOSAMAX [Suspect]
     Dosage: UNK
     Route: 048
     Dates: start: 2003, end: 2010
  2. ACLASTA [Suspect]
     Dosage: 3 INJECTIONS/ 3 DF
     Route: 042
     Dates: start: 2010
  3. DIDRONEL [Suspect]
     Dosage: UNK
     Route: 065
     Dates: start: 2001, end: 2003

REACTIONS (1)
  - Osteonecrosis [Unknown]
